FAERS Safety Report 6971741-7 (Version None)
Quarter: 2010Q3

REPORT INFORMATION
  Report Type: 
  Country: None (occurrence: None)
  Receive Date: 20100903
  Receipt Date: 20100825
  Transmission Date: 20110219
  Serious: Yes (Hospitalization)
  Sender: FDA-Public Use
  Company Number: 2010EN000246

PATIENT
  Age: 16 Year
  Sex: Female
  Weight: 69.4 kg

DRUGS (6)
  1. ONCASPAR [Suspect]
     Indication: ACUTE LYMPHOCYTIC LEUKAEMIA
     Dosage: 4425 MG; X1; IV
     Route: 042
     Dates: start: 20090713, end: 20090713
  2. DAUNORUBICIN HCL [Suspect]
     Indication: ACUTE LYMPHOCYTIC LEUKAEMIA
     Dosage: 90 MG; QW; IV
     Route: 042
     Dates: start: 20090710, end: 20090717
  3. METHOTREXATE [Suspect]
     Indication: ACUTE LYMPHOCYTIC LEUKAEMIA
     Dosage: 15 MG; X1; INTH
     Route: 037
     Dates: start: 20090717, end: 20090717
  4. PREDNISONE [Suspect]
     Indication: ACUTE LYMPHOCYTIC LEUKAEMIA
     Dosage: 840 MG; BID; PO
     Route: 048
     Dates: start: 20090710, end: 20090717
  5. CYTARABINE [Concomitant]
  6. VINCRISTINE [Concomitant]

REACTIONS (3)
  - DEHYDRATION [None]
  - FLUID INTAKE REDUCED [None]
  - VOMITING [None]
